FAERS Safety Report 7484843-6 (Version None)
Quarter: 2011Q2

REPORT INFORMATION
  Report Type: 
  Country: None (occurrence: None)
  Receive Date: 20110502
  Receipt Date: 20110127
  Transmission Date: 20111010
  Serious: Yes (Hospitalization)
  Sender: FDA-Public Use
  Company Number: OMX-2010-00109

PATIENT
  Age: 67 Year
  Sex: Male
  Weight: 58.514 kg

DRUGS (4)
  1. HEPARIN [Concomitant]
  2. ASPIRIN [Concomitant]
  3. EVICEL [Suspect]
     Indication: AORTIC BYPASS
     Dosage: EPILESIONAL
     Dates: start: 20100804, end: 20100804
  4. APPLICATOR [Concomitant]

REACTIONS (3)
  - NODAL RHYTHM [None]
  - FLUID OVERLOAD [None]
  - DEHYDRATION [None]
